FAERS Safety Report 19615832 (Version 1)
Quarter: 2021Q3

REPORT INFORMATION
  Report Type: Spontaneous
  Country: US (occurrence: US)
  Receive Date: 20210727
  Receipt Date: 20210727
  Transmission Date: 20211014
  Serious: No
  Sender: FDA-Public Use
  Company Number: US-PERRIGO-21US006833

PATIENT
  Age: 9 Year
  Sex: Male

DRUGS (1)
  1. CHILDRENS CETIRIZINE HYDROCHLORIDE ALLERGY [Suspect]
     Active Substance: CETIRIZINE HYDROCHLORIDE
     Indication: PRODUCT USED FOR UNKNOWN INDICATION
     Dosage: 10 MG, TWICE
     Route: 048
     Dates: start: 20210521, end: 20210521

REACTIONS (2)
  - Somnolence [Not Recovered/Not Resolved]
  - Irritability [Not Recovered/Not Resolved]

NARRATIVE: CASE EVENT DATE: 20210521
